FAERS Safety Report 7535261-3 (Version None)
Quarter: 2011Q2

REPORT INFORMATION
  Report Type: 
  Country: None (occurrence: None)
  Receive Date: 20110609
  Receipt Date: 20100105
  Transmission Date: 20111010
  Serious: No
  Sender: FDA-Public Use
  Company Number: 2010BI000428

PATIENT
  Age: 38 Year
  Sex: Female

DRUGS (2)
  1. TYSABRI [Suspect]
     Indication: MULTIPLE SCLEROSIS
     Route: 042
     Dates: start: 20080410, end: 20080605
  2. TYSABRI [Suspect]
     Route: 042
     Dates: start: 20081124, end: 20100816

REACTIONS (3)
  - MEMORY IMPAIRMENT [None]
  - ASTHENIA [None]
  - FATIGUE [None]
